FAERS Safety Report 7987937 (Version 4)
Quarter: 2014Q4

REPORT INFORMATION
  Report Type: Spontaneous
  Country: US (occurrence: US)
  Receive Date: 20110613
  Receipt Date: 20141014
  Transmission Date: 20150529
  Serious: Yes (Other)
  Sender: FDA-Public Use
  Company Number: US-ASTRAZENECA-2010SE26500

PATIENT
  Age: 57 Year
  Sex: Female
  Weight: 90.7 kg

DRUGS (25)
  1. SEROQUEL [Suspect]
     Active Substance: QUETIAPINE FUMARATE
     Indication: SCHIZOPHRENIFORM DISORDER
     Route: 048
     Dates: start: 201003, end: 201005
  2. SEROQUEL [Suspect]
     Active Substance: QUETIAPINE FUMARATE
     Indication: BIPOLAR I DISORDER
     Route: 048
     Dates: start: 201005
  3. HYDROXYZINE [Concomitant]
     Active Substance: HYDROXYZINE\HYDROXYZINE HYDROCHLORIDE
     Indication: MULTIPLE ALLERGIES
     Dosage: PRN
  4. RIBAVIRIN. [Concomitant]
     Active Substance: RIBAVIRIN
  5. ABILIFY [Concomitant]
     Active Substance: ARIPIPRAZOLE
     Route: 048
  6. SEROQUEL [Suspect]
     Active Substance: QUETIAPINE FUMARATE
     Indication: SCHIZOPHRENIFORM DISORDER
     Route: 048
     Dates: start: 201005
  7. SEROQUEL [Suspect]
     Active Substance: QUETIAPINE FUMARATE
     Indication: BIPOLAR I DISORDER
     Route: 048
     Dates: start: 201003, end: 201005
  8. SEROQUEL [Suspect]
     Active Substance: QUETIAPINE FUMARATE
     Indication: BIPOLAR I DISORDER
     Route: 048
     Dates: start: 201005
  9. SEROQUEL [Suspect]
     Active Substance: QUETIAPINE FUMARATE
     Indication: BIPOLAR I DISORDER
     Route: 048
  10. LOSARTAN [Concomitant]
     Active Substance: LOSARTAN
     Indication: HYPERTENSION
     Route: 048
     Dates: start: 2009
  11. SEROQUEL [Suspect]
     Active Substance: QUETIAPINE FUMARATE
     Indication: SCHIZOPHRENIFORM DISORDER
     Route: 048
  12. ZYPREXA [Concomitant]
     Active Substance: OLANZAPINE
     Dosage: PRN
  13. OMEGA 3 [Concomitant]
     Active Substance: OMEGA-3 FATTY ACIDS
  14. LEVOTHYROXINE [Concomitant]
     Active Substance: LEVOTHYROXINE
     Indication: THYROID DISORDER
     Dates: start: 2009
  15. SEROQUEL [Suspect]
     Active Substance: QUETIAPINE FUMARATE
     Indication: SCHIZOPHRENIFORM DISORDER
     Route: 048
     Dates: start: 201005
  16. PHOSPHATITAL CHOLINE [Concomitant]
  17. SEROQUEL [Suspect]
     Active Substance: QUETIAPINE FUMARATE
     Indication: SCHIZOPHRENIFORM DISORDER
     Route: 048
  18. SEROQUEL [Suspect]
     Active Substance: QUETIAPINE FUMARATE
     Indication: SCHIZOPHRENIFORM DISORDER
     Route: 048
  19. SEROQUEL [Suspect]
     Active Substance: QUETIAPINE FUMARATE
     Indication: SCHIZOPHRENIFORM DISORDER
     Route: 048
     Dates: start: 2014
  20. SOVALDI [Suspect]
     Active Substance: SOFOSBUVIR
     Indication: LIVER DISORDER
     Route: 065
  21. LITHIUM [Concomitant]
     Active Substance: LITHIUM CARBONATE
     Indication: BIPOLAR I DISORDER
     Route: 048
     Dates: start: 1985
  22. SEROQUEL [Suspect]
     Active Substance: QUETIAPINE FUMARATE
     Indication: BIPOLAR I DISORDER
     Route: 048
  23. SEROQUEL [Suspect]
     Active Substance: QUETIAPINE FUMARATE
     Indication: BIPOLAR I DISORDER
     Route: 048
  24. SEROQUEL [Suspect]
     Active Substance: QUETIAPINE FUMARATE
     Indication: BIPOLAR I DISORDER
     Route: 048
     Dates: start: 2014
  25. VITAMINS [Concomitant]
     Active Substance: VITAMINS

REACTIONS (21)
  - Ammonia increased [Unknown]
  - Liver function test abnormal [Recovering/Resolving]
  - Disturbance in attention [Recovered/Resolved]
  - Pruritus [Unknown]
  - Headache [Unknown]
  - Gait disturbance [Unknown]
  - Tremor [Unknown]
  - Hepatic cirrhosis [Unknown]
  - Obsessive thoughts [Recovered/Resolved]
  - Intentional product misuse [Unknown]
  - Drug ineffective [Unknown]
  - Hypertension [Unknown]
  - Fatigue [Unknown]
  - Constipation [Recovered/Resolved]
  - Somnolence [Unknown]
  - Joint swelling [Recovered/Resolved]
  - Thyroid disorder [Unknown]
  - Drug intolerance [Unknown]
  - Dizziness [Unknown]
  - Memory impairment [Not Recovered/Not Resolved]
  - Nausea [Unknown]

NARRATIVE: CASE EVENT DATE: 201003
